FAERS Safety Report 13594286 (Version 8)
Quarter: 2020Q2

REPORT INFORMATION
  Report Type: Report from Study
  Country: US (occurrence: US)
  Receive Date: 20170530
  Receipt Date: 20200605
  Transmission Date: 20200713
  Serious: Yes (Hospitalization)
  Sender: FDA-Public Use
  Company Number: US-ACTELION-A-NJ2015-125272

PATIENT
  Age: 30 Year
  Sex: Female
  Weight: 69.39 kg

DRUGS (8)
  1. VELETRI [Suspect]
     Active Substance: EPOPROSTENOL
     Dosage: 40 NG/KG, PER MIN
     Route: 042
     Dates: start: 20110107
  2. VELETRI [Suspect]
     Active Substance: EPOPROSTENOL
     Dosage: UNK
     Route: 042
  3. OPSUMIT [Suspect]
     Active Substance: MACITENTAN
     Indication: PULMONARY ARTERIAL HYPERTENSION
     Dosage: 10 MG, QD
     Route: 048
     Dates: start: 20151006
  4. VELETRI [Suspect]
     Active Substance: EPOPROSTENOL
     Dosage: 40 NG/KG, PER MIN
     Route: 042
     Dates: start: 20110107
  5. ADEMPAS [Concomitant]
     Active Substance: RIOCIGUAT
  6. CLARITIN [Concomitant]
     Active Substance: LORATADINE
  7. OPSUMIT [Suspect]
     Active Substance: MACITENTAN
     Dosage: 10 MG, QD
     Route: 048
     Dates: start: 20151001
  8. VELETRI [Suspect]
     Active Substance: EPOPROSTENOL
     Indication: PULMONARY ARTERIAL HYPERTENSION
     Dosage: 60 NG/KG, PER MIN
     Route: 042

REACTIONS (38)
  - Syncope [Unknown]
  - Oral herpes [Unknown]
  - Sinusitis [Unknown]
  - Drug hypersensitivity [Unknown]
  - Swelling face [Unknown]
  - Pallor [Unknown]
  - Vomiting [Unknown]
  - Orthostatic hypotension [Recovered/Resolved]
  - Dyspnoea [Not Recovered/Not Resolved]
  - Wheezing [Not Recovered/Not Resolved]
  - Dyspnoea exertional [Unknown]
  - Sinus congestion [Unknown]
  - Paranasal sinus hypersecretion [Unknown]
  - Device infusion issue [Unknown]
  - Nasal congestion [Unknown]
  - Abdominal discomfort [Unknown]
  - Dizziness [Unknown]
  - Loss of consciousness [Recovered/Resolved]
  - Lip swelling [Unknown]
  - Nasopharyngitis [Unknown]
  - Pain in jaw [Not Recovered/Not Resolved]
  - Weight decreased [Unknown]
  - Pneumonitis [Unknown]
  - Chest discomfort [Unknown]
  - Rash erythematous [Unknown]
  - Lower respiratory tract infection [Not Recovered/Not Resolved]
  - Lower respiratory tract congestion [Not Recovered/Not Resolved]
  - Pneumonia [Unknown]
  - Ear infection [Unknown]
  - Malaise [Recovering/Resolving]
  - Flushing [Not Recovered/Not Resolved]
  - Diarrhoea [Not Recovered/Not Resolved]
  - Nausea [Unknown]
  - Presyncope [Recovered/Resolved]
  - Rash pruritic [Unknown]
  - Ear pain [Unknown]
  - Cough [Not Recovered/Not Resolved]
  - Anaemia [Unknown]

NARRATIVE: CASE EVENT DATE: 20150418
